FAERS Safety Report 25820018 (Version 1)
Quarter: 2025Q3

REPORT INFORMATION
  Report Type: Report from Study
  Country: BR (occurrence: BR)
  Receive Date: 20250918
  Receipt Date: 20250918
  Transmission Date: 20251021
  Serious: Yes (Other)
  Sender: BIOGEN
  Company Number: BR-BIOGEN-2023BI01207884

PATIENT
  Age: 46 Year
  Sex: Female

DRUGS (8)
  1. TYSABRI [Suspect]
     Active Substance: NATALIZUMAB
     Indication: Relapsing-remitting multiple sclerosis
     Dosage: 300MG/15ML
     Route: 050
     Dates: start: 20230519
  2. TYSABRI [Suspect]
     Active Substance: NATALIZUMAB
     Dosage: 300 UNKNOWN
     Route: 050
     Dates: start: 2023
  3. CARBAMAZEPINE [Suspect]
     Active Substance: CARBAMAZEPINE
     Indication: Pain
     Route: 050
     Dates: start: 2024, end: 202503
  4. GABAPENTIN [Suspect]
     Active Substance: GABAPENTIN
     Indication: Hypoaesthesia
     Route: 050
  5. LOSARTAN [Concomitant]
     Active Substance: LOSARTAN
     Indication: Hypertension
     Route: 050
     Dates: start: 2019
  6. HYDROCHLOROTHIAZIDE [Concomitant]
     Active Substance: HYDROCHLOROTHIAZIDE
     Indication: Hypertension
     Route: 050
     Dates: start: 2019
  7. COPPER-CONTAINING INTRAUTERINE DEVICE (IUD) [Concomitant]
     Active Substance: COPPER
     Indication: Product used for unknown indication
     Route: 050
  8. PREGABALIN [Concomitant]
     Active Substance: PREGABALIN
     Indication: Pain
     Route: 050

REACTIONS (19)
  - Paralysis [Unknown]
  - Product storage error [Unknown]
  - Poor quality product administered [Recovered/Resolved]
  - Chest discomfort [Not Recovered/Not Resolved]
  - Abdominal pain [Not Recovered/Not Resolved]
  - Paraesthesia [Not Recovered/Not Resolved]
  - Hypoaesthesia [Unknown]
  - Decreased appetite [Unknown]
  - Discomfort [Unknown]
  - Gait disturbance [Unknown]
  - Hypersomnia [Unknown]
  - Constipation [Unknown]
  - Mobility decreased [Unknown]
  - Asthenia [Unknown]
  - Dyskinesia [Unknown]
  - Fall [Recovered/Resolved]
  - Cognitive disorder [Unknown]
  - Pain [Unknown]
  - Dizziness [Unknown]

NARRATIVE: CASE EVENT DATE: 20230501
